FAERS Safety Report 11332354 (Version 1)
Quarter: 2015Q3

REPORT INFORMATION
  Report Type: Spontaneous
  Country: US (occurrence: US)
  Receive Date: 20150803
  Receipt Date: 20150803
  Transmission Date: 20151125
  Serious: No
  Sender: FDA-Public Use
  Company Number: US-ELI_LILLY_AND_COMPANY-US200808006491

PATIENT
  Age: 73 Year
  Sex: Female

DRUGS (4)
  1. ZYPREXA [Suspect]
     Active Substance: OLANZAPINE
     Indication: DEMENTIA ALZHEIMER^S TYPE
     Dosage: 5 MG, 2/D
  2. ZYPREXA [Suspect]
     Active Substance: OLANZAPINE
     Dosage: 7.5 MG, 2/D
  3. ARICEPT [Concomitant]
     Active Substance: DONEPEZIL HYDROCHLORIDE
  4. BENZOTROPINE [Concomitant]
     Active Substance: BENZTROPINE

REACTIONS (7)
  - Paralysis [Unknown]
  - Amnesia [Unknown]
  - Movement disorder [Unknown]
  - Dyskinesia [Unknown]
  - Panic attack [Unknown]
  - Dementia [Unknown]
  - Speech disorder [Unknown]

NARRATIVE: CASE EVENT DATE: 200712
